FAERS Safety Report 8593646-0 (Version None)
Quarter: 2012Q3

REPORT INFORMATION
  Report Type: 
  Country: None (occurrence: None)
  Receive Date: 20120814
  Receipt Date: 20120706
  Transmission Date: 20120928
  Serious: No
  Sender: FDA-Public Use
  Company Number: US-ASTRAZENECA-2012SE46471

PATIENT
  Sex: Male

DRUGS (2)
  1. ORAL CORTICOSTEROIDS [Suspect]
  2. SYMBICORT [Suspect]
     Indication: ASTHMA
     Dosage: 2 PUFFS BID
     Route: 055
     Dates: start: 20090101

REACTIONS (1)
  - VISUAL IMPAIRMENT [None]
